FAERS Safety Report 8354551-8 (Version None)
Quarter: 2012Q2

REPORT INFORMATION
  Report Type: 
  Country: None (occurrence: None)
  Receive Date: 20120511
  Receipt Date: 20110222
  Transmission Date: 20120825
  Serious: No
  Sender: FDA-Public Use
  Company Number: US-TEVA-2011000860

PATIENT
  Sex: Female
  Weight: 59.02 kg

DRUGS (5)
  1. RITUXAN [Concomitant]
     Route: 042
     Dates: start: 20040101
  2. HYDROCHLOROTHIAZIDE [Concomitant]
     Route: 048
     Dates: start: 20040101
  3. PLAQUENIL [Concomitant]
     Route: 048
     Dates: start: 20040101
  4. IMURAN [Concomitant]
     Route: 048
     Dates: start: 20040101
  5. NUVIGIL [Suspect]
     Indication: RHEUMATOID ARTHRITIS
     Dosage: 150 MILLIGRAM;
     Route: 048
     Dates: start: 20110216, end: 20110219

REACTIONS (2)
  - RESTLESSNESS [None]
  - NAUSEA [None]
